FAERS Safety Report 15416504 (Version 1)
Quarter: 2018Q3

REPORT INFORMATION
  Report Type: Spontaneous
  Country: US (occurrence: US)
  Receive Date: 20180924
  Receipt Date: 20180924
  Transmission Date: 20181010
  Serious: No
  Sender: FDA-Public Use
  Company Number: US-BRISTOL-MYERS SQUIBB COMPANY-BMS-2018-087311

PATIENT
  Sex: Female

DRUGS (1)
  1. OPDIVO [Suspect]
     Active Substance: NIVOLUMAB
     Indication: NON-SMALL CELL LUNG CANCER
     Dosage: NOT PROVIDED
     Route: 042

REACTIONS (21)
  - Decreased appetite [Unknown]
  - Pollakiuria [Unknown]
  - Dyspnoea [Unknown]
  - Ocular icterus [Unknown]
  - Fatigue [Unknown]
  - Chest pain [Unknown]
  - Nausea [Unknown]
  - Urine odour abnormal [Unknown]
  - Dizziness [Unknown]
  - Depression [Unknown]
  - Blood urine [Unknown]
  - Muscular weakness [Unknown]
  - Asthenia [Unknown]
  - Joint swelling [Unknown]
  - Yellow skin [Unknown]
  - Headache [Unknown]
  - Insomnia [Unknown]
  - Dry skin [Unknown]
  - Respiratory tract congestion [Unknown]
  - Mood swings [Unknown]
  - Arthralgia [Unknown]
